FAERS Safety Report 7251558-9 (Version None)
Quarter: 2011Q1

REPORT INFORMATION
  Report Type: 
  Country: None (occurrence: None)
  Receive Date: 20110128
  Receipt Date: 20110118
  Transmission Date: 20110831
  Serious: Yes (Hospitalization)
  Sender: FDA-Public Use
  Company Number: FR-BRACCO-000370

PATIENT
  Sex: Male

DRUGS (2)
  1. MULTIHANCE [Suspect]
     Indication: AORTIC ANEURYSM
     Route: 042
     Dates: start: 20100308, end: 20100308
  2. MULTIHANCE [Suspect]
     Indication: NUCLEAR MAGNETIC RESONANCE IMAGING
     Route: 042
     Dates: start: 20100308, end: 20100308

REACTIONS (2)
  - HYPOTENSION [None]
  - ERYTHEMA [None]
